FAERS Safety Report 4810798-6 (Version None)
Quarter: 2005Q4

REPORT INFORMATION
  Report Type: 
  Country: None (occurrence: None)
  Receive Date: 20051024
  Receipt Date: 20051020
  Transmission Date: 20060501
  Serious: Yes (Hospitalization)
  Sender: FDA-Public Use
  Company Number: THAL-PR-0510L-0007

PATIENT
  Age: 77 Year
  Sex: Female

DRUGS (2)
  1. THALLOUS CHLORIDE TL 201 [Suspect]
     Indication: BRADYCARDIA
     Dosage: 129.5 MBQ, SINGLE DOSE, I.V.
     Route: 042
  2. DIPYRIDAMOLE [Concomitant]

REACTIONS (3)
  - ACUTE MYOCARDIAL INFARCTION [None]
  - BLOOD PRESSURE DECREASED [None]
  - CORONARY ARTERY STENOSIS [None]
